FAERS Safety Report 9046521 (Version 1)
Quarter: 2013Q1

REPORT INFORMATION
  Report Type: Spontaneous
  Country: US (occurrence: None)
  Receive Date: 20130128
  Receipt Date: 20130128
  Transmission Date: 20140127
  Serious: Yes (Life-Threatening, Hospitalization)
  Sender: FDA-Public Use
  Company Number: None

PATIENT
  Age: 64 Year
  Sex: Female
  Weight: 212.8 kg

DRUGS (1)
  1. JANUMET 50 MG/1000 MG [Suspect]
     Indication: DIABETES MELLITUS
     Route: 048
     Dates: start: 20130107, end: 20130124

REACTIONS (3)
  - Lipase increased [None]
  - Amylase increased [None]
  - Abdominal pain upper [None]
